FAERS Safety Report 8900604 (Version 1)
Quarter: 2012Q4

REPORT INFORMATION
  Report Type: 
  Country: US (occurrence: US)
  Receive Date: 20121109
  Receipt Date: 20121109
  Transmission Date: 20130627
  Serious: Yes (Disabling)
  Sender: FDA-Public Use
  Company Number: US-SANOFI-AVENTIS-2012SA081114

PATIENT
  Age: 86 Year
  Sex: Male

DRUGS (2)
  1. ELIGARD [Suspect]
     Route: 065
     Dates: start: 2010, end: 2010
  2. ELIGARD [Suspect]
     Route: 065

REACTIONS (1)
  - Musculoskeletal disorder [Recovered/Resolved]
